FAERS Safety Report 10166983 (Version 1)
Quarter: 2014Q2

REPORT INFORMATION
  Report Type: Spontaneous
  Country: US (occurrence: None)
  Receive Date: 20140509
  Receipt Date: 20140509
  Transmission Date: 20141212
  Serious: No
  Sender: FDA-Public Use
  Company Number: None

PATIENT
  Age: 18 Year
  Sex: Female
  Weight: 88.45 kg

DRUGS (2)
  1. AMOXICILLIN [Suspect]
     Indication: BRONCHITIS
     Route: 048
     Dates: start: 20140506, end: 20140508
  2. AMOXICILLIN [Suspect]
     Indication: TONSILLITIS
     Route: 048
     Dates: start: 20140506, end: 20140508

REACTIONS (6)
  - Headache [None]
  - Neck pain [None]
  - Eye pain [None]
  - Nausea [None]
  - Diarrhoea [None]
  - Ill-defined disorder [None]
